FAERS Safety Report 23965215 (Version 1)
Quarter: 2024Q2

REPORT INFORMATION
  Report Type: Report from Study
  Country: US (occurrence: US)
  Receive Date: 20240612
  Receipt Date: 20240612
  Transmission Date: 20240715
  Serious: Yes (Other)
  Sender: FDA-Public Use
  Company Number: US-ARGENX-2023-ARGX-US001289

PATIENT

DRUGS (1)
  1. VYVGART [Suspect]
     Active Substance: EFGARTIGIMOD ALFA-FCAB
     Indication: Myasthenia gravis
     Dosage: UNK
     Route: 042
     Dates: start: 20230222

REACTIONS (8)
  - Myasthenia gravis [Not Recovered/Not Resolved]
  - Dyspnoea [Not Recovered/Not Resolved]
  - Herpes zoster reactivation [Recovered/Resolved]
  - Muscle spasms [Unknown]
  - Loss of personal independence in daily activities [Unknown]
  - COVID-19 [Not Recovered/Not Resolved]
  - COVID-19 [Unknown]
  - COVID-19 [Unknown]

NARRATIVE: CASE EVENT DATE: 20230322
